FAERS Safety Report 10727847 (Version 2)
Quarter: 2015Q2

REPORT INFORMATION
  Report Type: Report from Study
  Country: JP (occurrence: JP)
  Receive Date: 20150121
  Receipt Date: 20150629
  Transmission Date: 20150821
  Serious: Yes (Life-Threatening, Hospitalization, Other)
  Sender: FDA-Public Use
  Company Number: JP-GILEAD-2012-0063601

PATIENT
  Age: 49 Year
  Sex: Female
  Weight: 53 kg

DRUGS (24)
  1. AMBRISENTAN [Suspect]
     Active Substance: AMBRISENTAN
     Indication: PORTAL HYPERTENSION
     Dosage: 2.5 MG, QD
     Route: 048
     Dates: start: 20111108, end: 20120410
  2. AMBRISENTAN [Suspect]
     Active Substance: AMBRISENTAN
     Dosage: UNK UNK, BID
     Route: 048
     Dates: start: 20121228, end: 20121229
  3. AMBRISENTAN [Suspect]
     Active Substance: AMBRISENTAN
     Dosage: 2.5 MG, BID
     Route: 048
     Dates: start: 20120411, end: 20121227
  4. AMBRISENTAN [Suspect]
     Active Substance: AMBRISENTAN
     Dosage: 3.75 MG, BID
     Route: 048
     Dates: start: 20130102, end: 20130107
  5. AMBRISENTAN [Suspect]
     Active Substance: AMBRISENTAN
     Dosage: 2.5 MG, TID
     Route: 048
     Dates: start: 20130108, end: 20130109
  6. MONILAC [Concomitant]
     Active Substance: LACTULOSE
     Dosage: UNK
     Dates: end: 20130225
  7. KANAMYCIN [Concomitant]
     Active Substance: KANAMYCIN\KANAMYCIN A SULFATE
     Indication: PROPHYLAXIS
     Dosage: UNK
  8. AMBRISENTAN [Suspect]
     Active Substance: AMBRISENTAN
     Dosage: 2.5 MG, QID
     Route: 048
     Dates: start: 20130110
  9. LACTULOSE. [Concomitant]
     Active Substance: LACTULOSE
     Dosage: UNK
     Dates: start: 20130226
  10. AMBRISENTAN [Suspect]
     Active Substance: AMBRISENTAN
     Indication: PULMONARY ARTERIAL HYPERTENSION
     Dosage: 2.5 MG, QD
     Route: 048
     Dates: start: 20110323, end: 20111010
  11. CARELOAD [Concomitant]
     Active Substance: BERAPROST SODIUM
     Indication: PULMONARY ARTERIAL HYPERTENSION
     Route: 048
  12. URSO [Concomitant]
     Active Substance: URSODIOL
     Route: 048
  13. PORTOLAC [Concomitant]
     Active Substance: LACTITOL
     Dosage: UNK
     Dates: end: 20130222
  14. RECALBON                           /06391801/ [Concomitant]
     Active Substance: MINODRONIC ACID
     Indication: PROPHYLAXIS
     Dosage: UNK
  15. FUROSEMIDE. [Concomitant]
     Active Substance: FUROSEMIDE
     Route: 048
  16. ALDACTONE [Concomitant]
     Active Substance: SPIRONOLACTONE
     Dosage: UNK
     Route: 048
  17. SUMIFERON                          /05982601/ [Concomitant]
     Dosage: UNK
     Route: 042
     Dates: end: 20130107
  18. PORTOLAC [Concomitant]
     Active Substance: LACTITOL
     Dosage: UNK
     Dates: start: 20130716
  19. AMBRISENTAN [Suspect]
     Active Substance: AMBRISENTAN
     Dosage: 2.5 MG, BID
     Route: 048
     Dates: start: 20111011, end: 20111107
  20. AMBRISENTAN [Suspect]
     Active Substance: AMBRISENTAN
     Dosage: 5 MG, BID
     Route: 048
     Dates: start: 20121230, end: 20130101
  21. FUROSEMIDE. [Concomitant]
     Active Substance: FUROSEMIDE
     Route: 048
  22. SLOW-K [Concomitant]
     Active Substance: POTASSIUM CHLORIDE
     Dosage: UNK
     Route: 048
  23. SLOW-K [Concomitant]
     Active Substance: POTASSIUM CHLORIDE
     Route: 048
  24. ALDACTONE [Concomitant]
     Active Substance: SPIRONOLACTONE
     Route: 048

REACTIONS (9)
  - Headache [Recovering/Resolving]
  - Right ventricular failure [Recovering/Resolving]
  - Anaemia [Recovering/Resolving]
  - Oedema [Recovering/Resolving]
  - Hypoalbuminaemia [Not Recovered/Not Resolved]
  - Hepatic function abnormal [Recovering/Resolving]
  - Hepatic encephalopathy [Recovering/Resolving]
  - Right ventricular failure [Recovering/Resolving]
  - Spondylitic myelopathy [Recovering/Resolving]

NARRATIVE: CASE EVENT DATE: 20110524
